FAERS Safety Report 21816559 (Version 14)
Quarter: 2023Q4

REPORT INFORMATION
  Report Type: Report from Study
  Country: US (occurrence: US)
  Receive Date: 20230104
  Receipt Date: 20231024
  Transmission Date: 20240110
  Serious: No
  Sender: FDA-Public Use
  Company Number: US-002147023-NVSC2023US001463

PATIENT
  Age: 42 Year
  Sex: Female

DRUGS (1)
  1. KESIMPTA [Suspect]
     Active Substance: OFATUMUMAB
     Indication: Product used for unknown indication
     Dosage: UNK, QW
     Route: 058
     Dates: start: 20230101, end: 202307

REACTIONS (12)
  - Fatigue [Unknown]
  - Brain fog [Unknown]
  - Feeling cold [Unknown]
  - Pain [Unknown]
  - Musculoskeletal stiffness [Recovered/Resolved]
  - Restless legs syndrome [Unknown]
  - Nausea [Unknown]
  - Myalgia [Unknown]
  - Chills [Unknown]
  - Headache [Unknown]
  - Injection site pain [Unknown]
  - Inappropriate schedule of product administration [Unknown]

NARRATIVE: CASE EVENT DATE: 20230101
